FAERS Safety Report 4331628-5 (Version None)
Quarter: 2004Q1

REPORT INFORMATION
  Report Type: 
  Country: None (occurrence: None)
  Receive Date: 20040329
  Receipt Date: 20040316
  Transmission Date: 20041129
  Serious: Yes (Hospitalization)
  Sender: FDA-Public Use
  Company Number: 04P-163-0253655-00

PATIENT
  Age: 62 Year
  Sex: Female
  Weight: 45.3597 kg

DRUGS (9)
  1. HUMIRA [Suspect]
     Indication: RHEUMATOID ARTHRITIS
     Dosage: 40 MG, 1 IN 2 WK, SUBCUTANEOUS
     Route: 058
     Dates: start: 20030801, end: 20040101
  2. PREDNISONE [Concomitant]
  3. BUCINDOLOL HYDROCHLORIDE [Concomitant]
  4. HYDROXYCHLOROQUINE PHOSPHATE [Concomitant]
  5. PENICILLAMINE [Concomitant]
  6. ATORVASTATIN [Concomitant]
  7. MULTI-VITAMINS [Concomitant]
  8. METHOTREXATE [Concomitant]
  9. ALENDRONATE SODIUM [Concomitant]

REACTIONS (5)
  - FALL [None]
  - HERPES ZOSTER [None]
  - NEUROPATHY [None]
  - PHARYNGOLARYNGEAL PAIN [None]
  - WRIST FRACTURE [None]
